FAERS Safety Report 6638519-5 (Version None)
Quarter: 2010Q1

REPORT INFORMATION
  Report Type: 
  Country: None (occurrence: None)
  Receive Date: 20100317
  Receipt Date: 20100305
  Transmission Date: 20100710
  Serious: Yes (Hospitalization)
  Sender: FDA-Public Use
  Company Number: US-ELI_LILLY_AND_COMPANY-US200905004353

PATIENT
  Sex: Female
  Weight: 110 kg

DRUGS (7)
  1. BYETTA [Suspect]
     Indication: DIABETES MELLITUS
     Dosage: 10 UG, 2/D
     Route: 058
     Dates: start: 20060101, end: 20090401
  2. COZAAR [Concomitant]
     Dosage: 100 MG, DAILY (1/D)
  3. METFORMIN HYDROCHLORIDE [Concomitant]
     Dosage: 1000 MG, 2/D
  4. GLIPIZIDE [Concomitant]
     Dosage: 5 MG, UNK
  5. VYTORIN [Concomitant]
     Dosage: UNK, DAILY (1/D)
  6. LANTUS [Concomitant]
  7. METHAZOLAMIDE [Concomitant]
     Dosage: 50 MG, 2/D

REACTIONS (3)
  - OFF LABEL USE [None]
  - PANCREATITIS ACUTE [None]
  - PANCREATITIS RELAPSING [None]
